FAERS Safety Report 12552350 (Version 3)
Quarter: 2016Q3

REPORT INFORMATION
  Report Type: Spontaneous
  Country: CA (occurrence: CA)
  Receive Date: 20160713
  Receipt Date: 20160908
  Transmission Date: 20161109
  Serious: Yes (Other)
  Sender: FDA-Public Use
  Company Number: CA-GLAXOSMITHKLINE-CA2015GSK160243

PATIENT
  Age: 43 Year
  Sex: Female

DRUGS (6)
  1. IMURAN [Concomitant]
     Active Substance: AZATHIOPRINE
     Dosage: 150 MG, 1D
  2. DEPO-MEDROL [Concomitant]
     Active Substance: METHYLPREDNISOLONE ACETATE
     Dosage: 160 MG, UNK
     Route: 030
  3. GABAPENTIN. [Concomitant]
     Active Substance: GABAPENTIN
     Dosage: 300 MG, 1D
  4. BENLYSTA [Suspect]
     Active Substance: BELIMUMAB
     Dosage: UNK
     Route: 042
     Dates: start: 20151120
  5. BENLYSTA [Suspect]
     Active Substance: BELIMUMAB
     Indication: SYSTEMIC LUPUS ERYTHEMATOSUS
     Dosage: 660 MG, UNK
     Route: 042
     Dates: start: 20151106, end: 201606
  6. METHOTREXATE. [Concomitant]
     Active Substance: METHOTREXATE
     Indication: RHEUMATOID ARTHRITIS

REACTIONS (21)
  - Peripheral swelling [Not Recovered/Not Resolved]
  - Nasopharyngitis [Not Recovered/Not Resolved]
  - Fatigue [Unknown]
  - Rheumatoid nodule [Not Recovered/Not Resolved]
  - Pyrexia [Not Recovered/Not Resolved]
  - Urinary tract infection [Unknown]
  - Impetigo [Unknown]
  - Oropharyngeal pain [Not Recovered/Not Resolved]
  - Granuloma [Unknown]
  - Paronychia [Recovered/Resolved]
  - Malaise [Unknown]
  - Erythema [Not Recovered/Not Resolved]
  - Neck pain [Unknown]
  - Pain [Not Recovered/Not Resolved]
  - Infection [Recovered/Resolved]
  - Rheumatoid arthritis [Not Recovered/Not Resolved]
  - Feeling abnormal [Not Recovered/Not Resolved]
  - Headache [Unknown]
  - Localised infection [Unknown]
  - Nausea [Unknown]
  - Abscess [Recovered/Resolved]

NARRATIVE: CASE EVENT DATE: 20151106
